FAERS Safety Report 8838713 (Version 1)
Quarter: 2012Q4

REPORT INFORMATION
  Report Type: 
  Country: US (occurrence: US)
  Receive Date: 20121012
  Receipt Date: 20121012
  Transmission Date: 20130627
  Serious: No
  Sender: FDA-Public Use
  Company Number: US-ASTRAZENECA-2012SE76835

PATIENT
  Age: 41 Year
  Sex: Female

DRUGS (2)
  1. SEROQUEL [Suspect]
     Indication: SCHIZOPHRENIA
     Route: 048
  2. CLOZARIL [Concomitant]
     Indication: MENTAL DISORDER

REACTIONS (2)
  - Lens discolouration [Unknown]
  - Off label use [Unknown]
